FAERS Safety Report 15427140 (Version 1)
Quarter: 2018Q3

REPORT INFORMATION
  Report Type: Spontaneous
  Country: US (occurrence: US)
  Receive Date: 20180925
  Receipt Date: 20180925
  Transmission Date: 20181010
  Serious: No
  Sender: FDA-Public Use
  Company Number: US-INDIVIOR LIMITED-INDV-110169-2018

PATIENT
  Sex: Female

DRUGS (1)
  1. SUBOXONE [Suspect]
     Active Substance: BUPRENORPHINE HYDROCHLORIDE\NALOXONE HYDROCHLORIDE
     Indication: DRUG DEPENDENCE
     Dosage: 4MG, UNK BY CUTTING
     Route: 065

REACTIONS (4)
  - Plantar fasciitis [Unknown]
  - Gait disturbance [Unknown]
  - Wrong technique in product usage process [Recovered/Resolved]
  - Procedural pain [Unknown]
